FAERS Safety Report 5959135-4 (Version None)
Quarter: 2008Q4

REPORT INFORMATION
  Report Type: 
  Country: None (occurrence: None)
  Receive Date: 20081120
  Receipt Date: 20080212
  Transmission Date: 20090506
  Serious: No
  Sender: FDA-Public Use
  Company Number: A0709083A

PATIENT
  Age: 54 Year
  Sex: Female

DRUGS (14)
  1. WELLBUTRIN SR [Suspect]
     Indication: DEPRESSION
     Route: 048
     Dates: start: 19970101
  2. WELLBUTRIN XL [Suspect]
     Indication: DEPRESSION
     Dosage: 450MG PER DAY
     Route: 048
  3. VANCOMYCIN [Concomitant]
  4. GENTAMYCIN SULFATE [Concomitant]
  5. PROVIGIL [Concomitant]
  6. NITROFURANTOIN [Concomitant]
  7. LEXAPRO [Concomitant]
  8. ATENOLOL [Concomitant]
  9. VALIUM [Concomitant]
  10. MORPHINE [Concomitant]
  11. NORCO [Concomitant]
  12. LEVOTHYROXINE SODIUM [Concomitant]
  13. AMBIEN [Concomitant]
  14. SIMVASTATIN [Concomitant]

REACTIONS (10)
  - ANXIETY [None]
  - CONFUSIONAL STATE [None]
  - DRUG INEFFECTIVE [None]
  - DRY MOUTH [None]
  - FLATULENCE [None]
  - HYPERHIDROSIS [None]
  - INSOMNIA [None]
  - MEMORY IMPAIRMENT [None]
  - MYALGIA [None]
  - TINNITUS [None]
